FAERS Safety Report 6752068-5 (Version None)
Quarter: 2010Q2

REPORT INFORMATION
  Report Type: 
  Country: None (occurrence: None)
  Receive Date: 20100602
  Receipt Date: 20100519
  Transmission Date: 20101027
  Serious: Yes (Hospitalization)
  Sender: FDA-Public Use
  Company Number: US-ELI_LILLY_AND_COMPANY-US201005006537

PATIENT
  Sex: Female

DRUGS (15)
  1. FORTEO [Suspect]
     Indication: OSTEOPOROSIS
     Dosage: 20 UG, DAILY (1/D)
     Dates: start: 20100426
  2. CALTRATE /00108001/ [Concomitant]
     Indication: BLOOD CALCIUM DECREASED
     Dosage: UNK, 2/D
  3. ADALAT [Concomitant]
     Dosage: 30 MG, DAILY (1/D)
     Dates: start: 20100101
  4. LIPITOR [Concomitant]
     Dosage: 10 MG, DAILY (1/D)
  5. FUROSEMIDE [Concomitant]
     Dosage: 20 MG, DAILY (1/D)
  6. POTASSIUM [Concomitant]
     Dosage: UNK, 2/D
  7. WARFARIN [Concomitant]
     Dosage: 3 MG, DAILY (1/D)
  8. TOPROL-XL [Concomitant]
     Dosage: 20 MG, DAILY (1/D)
  9. AMBIEN [Concomitant]
     Dosage: 10 MG, DAILY (1/D)
  10. ASPIRIN [Concomitant]
     Dosage: UNK, DAILY (1/D)
  11. OMEPRAZOLE [Concomitant]
     Dosage: 20 MG, 2/D
  12. VIACTIV /00751501/ [Concomitant]
     Dosage: UNK, DAILY (1/D)
  13. SPIRIVA [Concomitant]
     Dosage: UNK, DAILY (1/D)
     Route: 055
  14. SYMBICORT [Concomitant]
     Dosage: UNK, 2/D
  15. CALCIUM W/VITAMIN D NOS [Concomitant]
     Dosage: UNK, 2/D

REACTIONS (4)
  - COLITIS [None]
  - CONFUSIONAL STATE [None]
  - DYSPNOEA [None]
  - URINARY TRACT INFECTION [None]
